FAERS Safety Report 20407103 (Version 1)
Quarter: 2022Q1

REPORT INFORMATION
  Report Type: Report from Study
  Country: IN (occurrence: IN)
  Receive Date: 20220131
  Receipt Date: 20220131
  Transmission Date: 20220423
  Serious: Yes (Death)
  Sender: FDA-Public Use
  Company Number: IN-002147023-NVSC2021IN280422

PATIENT

DRUGS (1)
  1. RUXOLITINIB [Suspect]
     Active Substance: RUXOLITINIB
     Indication: Primary myelofibrosis
     Dosage: 20 MG, BID
     Route: 048
     Dates: start: 20211126

REACTIONS (3)
  - Tongue pruritus [Not Recovered/Not Resolved]
  - Death [Fatal]
  - Tongue erythema [Not Recovered/Not Resolved]

NARRATIVE: CASE EVENT DATE: 20211203
